FAERS Safety Report 19860725 (Version 1)
Quarter: 2021Q3

REPORT INFORMATION
  Report Type: Spontaneous
  Country: US (occurrence: US)
  Receive Date: 20210921
  Receipt Date: 20210921
  Transmission Date: 20211014
  Serious: No
  Sender: FDA-Public Use
  Company Number: US-HIKMA PHARMACEUTICALS USA INC.-US-H14001-21-02996

PATIENT
  Sex: Female

DRUGS (1)
  1. FLUTICASONE PROPIONATE AND SALMETEROL [Suspect]
     Active Substance: FLUTICASONE PROPIONATE\SALMETEROL XINAFOATE
     Indication: BRONCHITIS
     Dosage: UNKNOWN
     Route: 065

REACTIONS (6)
  - Oropharyngeal discomfort [Unknown]
  - Panic attack [Unknown]
  - Dyspnoea [Unknown]
  - Pruritus [Unknown]
  - Nausea [Unknown]
  - Drug ineffective [Unknown]
